FAERS Safety Report 20409309 (Version 1)
Quarter: 2022Q1

REPORT INFORMATION
  Report Type: Spontaneous
  Country: US (occurrence: None)
  Receive Date: 20220201
  Receipt Date: 20220201
  Transmission Date: 20220423
  Serious: Yes (Other)
  Sender: FDA-Public Use
  Company Number: US-MICRO LABS LIMITED-ML2022-00322

PATIENT
  Age: 65 Year
  Sex: Male

DRUGS (3)
  1. APIXABAN [Suspect]
     Active Substance: APIXABAN
     Indication: Deep vein thrombosis
  2. APIXABAN [Suspect]
     Active Substance: APIXABAN
  3. PRIMIDONE [Suspect]
     Active Substance: PRIMIDONE
     Indication: Tremor

REACTIONS (2)
  - Drug level decreased [Recovered/Resolved]
  - Drug interaction [Unknown]
